FAERS Safety Report 6387432-X (Version None)
Quarter: 2009Q3

REPORT INFORMATION
  Report Type: 
  Country: None (occurrence: None)
  Receive Date: 20090930
  Receipt Date: 20090916
  Transmission Date: 20100115
  Serious: Yes (Other)
  Sender: FDA-Public Use
  Company Number: 230781J09USA

PATIENT
  Age: 62 Year
  Sex: Female

DRUGS (1)
  1. REBIF [Suspect]
     Indication: MULTIPLE SCLEROSIS
     Dosage: BETA)   44 MCG, 3 IN 1 WEEKS, SUBCUTANEOUS; BETA)   22 MCG, 3 IN 1 WEEKS, SUBCUTANEOUS
     Route: 058
     Dates: start: 20011201

REACTIONS (4)
  - DIARRHOEA [None]
  - LIVER DISORDER [None]
  - MALAISE [None]
  - RECTAL HAEMORRHAGE [None]
